FAERS Safety Report 15968176 (Version 1)
Quarter: 2019Q1

REPORT INFORMATION
  Report Type: Spontaneous
  Country: GR (occurrence: GR)
  Receive Date: 20190215
  Receipt Date: 20190215
  Transmission Date: 20190418
  Serious: Yes (Hospitalization)
  Sender: FDA-Public Use
  Company Number: GR-BIOGEN-2019BI00690347

PATIENT
  Age: 49 Year
  Sex: Female

DRUGS (2)
  1. PLEGRIDY [Suspect]
     Active Substance: PEGINTERFERON BETA-1A
     Indication: MULTIPLE SCLEROSIS
     Route: 058
     Dates: start: 20181219
  2. PLEGRIDY [Suspect]
     Active Substance: PEGINTERFERON BETA-1A
     Route: 058
     Dates: start: 20190103, end: 20190103

REACTIONS (7)
  - Injection site pruritus [Recovered/Resolved]
  - Platelet count decreased [Not Recovered/Not Resolved]
  - Multiple sclerosis relapse [Unknown]
  - Influenza like illness [Recovered/Resolved]
  - Injection site erythema [Recovered/Resolved]
  - Depression [Not Recovered/Not Resolved]
  - Hepatic enzyme increased [Not Recovered/Not Resolved]

NARRATIVE: CASE EVENT DATE: 20181219
